FAERS Safety Report 17560159 (Version 2)
Quarter: 2020Q1

REPORT INFORMATION
  Report Type: Spontaneous
  Country: US (occurrence: US)
  Receive Date: 20200319
  Receipt Date: 20200330
  Transmission Date: 20200409
  Serious: No
  Sender: FDA-Public Use
  Company Number: US-PFIZER INC-2020119070

PATIENT
  Age: 69 Year
  Sex: Female
  Weight: 68.4 kg

DRUGS (2)
  1. FASLODEX [Suspect]
     Active Substance: FULVESTRANT
     Dosage: UNK
  2. IBRANCE [Suspect]
     Active Substance: PALBOCICLIB
     Indication: NEOPLASM MALIGNANT
     Dosage: 1125 MG ONCE DAILY , CYCLIC (21 DAYS OUT OF THE MONTH, PLUS SEVEN)
     Route: 048

REACTIONS (1)
  - Fatigue [Not Recovered/Not Resolved]
